FAERS Safety Report 9361012 (Version 3)
Quarter: 2013Q3

REPORT INFORMATION
  Report Type: Spontaneous
  Country: US (occurrence: US)
  Receive Date: 20130621
  Receipt Date: 20130822
  Transmission Date: 20140515
  Serious: Yes (Other)
  Sender: FDA-Public Use
  Company Number: US-PFIZER INC-2013186069

PATIENT
  Age: 60 Year
  Sex: Male
  Weight: 87.08 kg

DRUGS (5)
  1. LYRICA [Suspect]
     Indication: NERVE INJURY
     Dosage: 150 MG, 3X/DAY
     Route: 048
  2. LYRICA [Suspect]
     Indication: NEUROPATHY PERIPHERAL
     Dosage: 200 MG, 3X/DAY
     Route: 048
  3. LYRICA [Suspect]
     Dosage: 300 MG, 3X/DAY
     Route: 048
  4. LYRICA [Suspect]
     Dosage: UNK
  5. PERCOCET [Concomitant]
     Indication: PAIN IN EXTREMITY
     Dosage: 10/325MG, EVERY 4 HRS

REACTIONS (4)
  - Off label use [Unknown]
  - Femur fracture [Unknown]
  - Arthropathy [Unknown]
  - Pain [Unknown]
